FAERS Safety Report 23973682 (Version 2)
Quarter: 2025Q2

REPORT INFORMATION
  Report Type: Spontaneous
  Country: US (occurrence: None)
  Receive Date: 20240613
  Receipt Date: 20250613
  Transmission Date: 20250716
  Serious: Yes (Other)
  Sender: MDD OPERATIONS
  Company Number: US-MDD US Operations-MDD202403-001121

PATIENT
  Age: 62 Year
  Sex: Male

DRUGS (12)
  1. APOKYN [Suspect]
     Active Substance: APOMORPHINE HYDROCHLORIDE
     Indication: Parkinson^s disease
     Dosage: 5X3ML, ON TITRATION, UPTO 5 TIMES A DAY, UPTO MAXIMUM OF 0.6 ML (NOT THERE YET SINCE IT WAS JUST THE
     Route: 058
     Dates: start: 20240327
  2. APOKYN [Suspect]
     Active Substance: APOMORPHINE HYDROCHLORIDE
     Route: 058
     Dates: start: 20240409
  3. APOKYN [Suspect]
     Active Substance: APOMORPHINE HYDROCHLORIDE
     Route: 058
     Dates: start: 202403, end: 202405
  4. ATORVASTATIN [Concomitant]
     Active Substance: ATORVASTATIN
  5. LEVOTHYROXINE [Concomitant]
     Active Substance: LEVOTHYROXINE
  6. MIDODRINE [Concomitant]
     Active Substance: MIDODRINE
  7. PROTONIX [Concomitant]
     Active Substance: PANTOPRAZOLE SODIUM
     Indication: Gastrooesophageal reflux disease
  8. Cinemex [Concomitant]
  9. ENTACAPONE [Concomitant]
     Active Substance: ENTACAPONE
  10. ELIQUIS [Concomitant]
     Active Substance: APIXABAN
     Indication: Anticoagulant therapy
  11. TYLENOL [Concomitant]
     Active Substance: ACETAMINOPHEN
  12. CARBIDOPA\LEVODOPA [Concomitant]
     Active Substance: CARBIDOPA\LEVODOPA

REACTIONS (18)
  - Chest pain [Unknown]
  - Chest pain [Recovering/Resolving]
  - Chest pain [Recovered/Resolved]
  - Blood pressure increased [Not Recovered/Not Resolved]
  - Myalgia [Unknown]
  - Hypertension [Unknown]
  - Heart rate increased [Unknown]
  - Cold sweat [Unknown]
  - Paraesthesia [Recovered/Resolved]
  - Cold sweat [Recovered/Resolved]
  - Tremor [Recovered/Resolved]
  - Hyperhidrosis [Unknown]
  - Pain in extremity [Unknown]
  - Headache [Recovering/Resolving]
  - Blood pressure decreased [Recovering/Resolving]
  - Asthenia [Recovering/Resolving]
  - Blood pressure decreased [Recovered/Resolved]
  - Dizziness [Recovered/Resolved]

NARRATIVE: CASE EVENT DATE: 20240327
